FAERS Safety Report 9782437 (Version 1)
Quarter: 2013Q4

REPORT INFORMATION
  Report Type: Spontaneous
  Country: CH (occurrence: CH)
  Receive Date: 20131226
  Receipt Date: 20131226
  Transmission Date: 20140711
  Serious: Yes (Hospitalization, Congenital Anomaly, Other)
  Sender: FDA-Public Use
  Company Number: CH-JNJFOC-20131210873

PATIENT
  Sex: Male
  Weight: 2.7 kg

DRUGS (7)
  1. TOPAMAX [Suspect]
     Indication: FOETAL EXPOSURE DURING PREGNANCY
     Route: 064
     Dates: end: 201305
  2. TOPAMAX [Suspect]
     Indication: BIPOLAR DISORDER
     Route: 064
     Dates: end: 201305
  3. XANAX [Suspect]
     Indication: FOETAL EXPOSURE DURING PREGNANCY
     Route: 064
     Dates: start: 2012
  4. METHADONE [Suspect]
     Indication: FOETAL EXPOSURE DURING PREGNANCY
     Route: 064
  5. METHADONE [Suspect]
     Indication: FOETAL EXPOSURE DURING PREGNANCY
     Route: 064
  6. SEROQUEL [Suspect]
     Indication: FOETAL EXPOSURE DURING PREGNANCY
     Route: 064
     Dates: start: 2013, end: 201307
  7. SEROQUEL [Suspect]
     Indication: BIPOLAR DISORDER
     Route: 064
     Dates: start: 2013, end: 201307

REACTIONS (3)
  - Foetal growth restriction [Unknown]
  - Drug withdrawal syndrome neonatal [Unknown]
  - Foetal exposure during pregnancy [Recovered/Resolved]
